FAERS Safety Report 20010778 (Version 1)
Quarter: 2021Q4

REPORT INFORMATION
  Report Type: Spontaneous
  Country: GB (occurrence: GB)
  Receive Date: 20211029
  Receipt Date: 20211029
  Transmission Date: 20220304
  Serious: Yes (Other)
  Sender: FDA-Public Use
  Company Number: GB-GLAXOSMITHKLINE-GB2021EME223298

PATIENT
  Sex: Female

DRUGS (2)
  1. PREDNISOLONE [Suspect]
     Active Substance: PREDNISOLONE
     Indication: Arthritis
     Dosage: 10 MG, QD
  2. NUCALA [Suspect]
     Active Substance: MEPOLIZUMAB
     Indication: Product used for unknown indication
     Dosage: 100 MG, Z (EVERY 4 WEEKS)
     Route: 058

REACTIONS (6)
  - Steroid withdrawal syndrome [Unknown]
  - Myalgia [Unknown]
  - Head discomfort [Unknown]
  - Fatigue [Unknown]
  - Irritability [Unknown]
  - Anger [Unknown]
